FAERS Safety Report 4760331-2 (Version None)
Quarter: 2005Q3

REPORT INFORMATION
  Report Type: 
  Country: None (occurrence: None)
  Receive Date: 20050831
  Receipt Date: 20050811
  Transmission Date: 20060218
  Serious: Yes (Hospitalization, Other)
  Sender: FDA-Public Use
  Company Number: JP_050807239

PATIENT
  Age: 62 Year
  Sex: Male
  Weight: 50 kg

DRUGS (3)
  1. GEMZAR [Suspect]
     Indication: PANCREATIC CARCINOMA RECURRENT
     Dosage: 1400 MG OTHER
     Route: 050
     Dates: start: 20050425
  2. VOLTAREN SUPPOSITORIES (DICLOFENAC SODIUM) [Concomitant]
  3. MS CONTIN [Concomitant]

REACTIONS (14)
  - CHLAMYDIAL INFECTION [None]
  - COUGH [None]
  - CYTOMEGALOVIRUS ANTIBODY POSITIVE [None]
  - DIFFICULTY IN WALKING [None]
  - DYSPNOEA [None]
  - HYPOAESTHESIA [None]
  - LYMPHOCYTE STIMULATION TEST POSITIVE [None]
  - METASTASES TO SPINE [None]
  - PARESIS [None]
  - PNEUMONITIS [None]
  - PO2 DECREASED [None]
  - PULMONARY FUNCTION TEST ABNORMAL [None]
  - PYREXIA [None]
  - RESTRICTIVE PULMONARY DISEASE [None]
